FAERS Safety Report 4741335-2 (Version None)
Quarter: 2005Q3

REPORT INFORMATION
  Report Type: 
  Country: None (occurrence: None)
  Receive Date: 20050808
  Receipt Date: 20050726
  Transmission Date: 20060218
  Serious: Yes (Hospitalization, Other)
  Sender: FDA-Public Use
  Company Number: 2005107327

PATIENT
  Sex: Female
  Weight: 78.9259 kg

DRUGS (2)
  1. LONITEN [Suspect]
     Indication: HYPERTENSION
     Dosage: 20 MG (10 MG, TWICE DAILY)
  2. MINOXIDIL [Suspect]
     Indication: HYPERTENSION
     Dosage: 20 MG (10 MG, BID INTERVAL:  EVEREY DAY)

REACTIONS (2)
  - ATRIAL FIBRILLATION [None]
  - DIVERTICULITIS [None]
